FAERS Safety Report 5780793-1 (Version None)
Quarter: 2008Q2

REPORT INFORMATION
  Report Type: 
  Country: None (occurrence: None)
  Receive Date: 20080620
  Receipt Date: 20080609
  Transmission Date: 20081010
  Serious: Yes (Other)
  Sender: FDA-Public Use
  Company Number: US-PFIZER INC-2005092117

PATIENT
  Age: 68 Year
  Sex: Male

DRUGS (1)
  1. VIAGRA [Suspect]
     Dosage: TEXT: 50 TO 100MG
     Route: 048

REACTIONS (2)
  - CHORIORETINOPATHY [None]
  - RETINAL DETACHMENT [None]
